FAERS Safety Report 6236747-4 (Version None)
Quarter: 2009Q2

REPORT INFORMATION
  Report Type: 
  Country: None (occurrence: None)
  Receive Date: 20090619
  Receipt Date: 20090611
  Transmission Date: 20091009
  Serious: Yes (Hospitalization)
  Sender: FDA-Public Use
  Company Number: PHHY2009CA10497

PATIENT
  Sex: Female

DRUGS (2)
  1. OCTREOTIDE ACETATE [Suspect]
     Dosage: UNK
     Route: 058
     Dates: start: 20090201
  2. SANDOSTATIN LAR [Suspect]
     Indication: CARCINOID SYNDROME
     Dosage: 20 MG, QMO
     Route: 030
     Dates: start: 20090325

REACTIONS (4)
  - DIARRHOEA [None]
  - DIZZINESS [None]
  - GOUT [None]
  - INTESTINAL RESECTION [None]
